FAERS Safety Report 5472705-5 (Version None)
Quarter: 2007Q3

REPORT INFORMATION
  Report Type: 
  Country: None (occurrence: None)
  Receive Date: 20070926
  Receipt Date: 20070910
  Transmission Date: 20080115
  Serious: Yes (Other)
  Sender: FDA-Public Use
  Company Number: 8026769

PATIENT
  Age: 38 Year
  Sex: Male
  Weight: 70 kg

DRUGS (1)
  1. XYZAL [Suspect]
     Indication: SEASONAL ALLERGY
     Dosage: 1 DF /D PO
     Route: 048
     Dates: start: 20070401, end: 20070409

REACTIONS (2)
  - BLINDNESS TRANSIENT [None]
  - MIGRAINE [None]
